FAERS Safety Report 17238212 (Version 5)
Quarter: 2020Q1

REPORT INFORMATION
  Report Type: Spontaneous
  Country: JP (occurrence: JP)
  Receive Date: 20200106
  Receipt Date: 20200319
  Transmission Date: 20200409
  Serious: Yes (Other)
  Sender: FDA-Public Use
  Company Number: NVSJ2019JP000500

PATIENT
  Sex: Male

DRUGS (38)
  1. LANDSEN [Suspect]
     Active Substance: CLONAZEPAM
     Indication: AKATHISIA
     Dosage: UNK
     Route: 065
  2. AMLODIN [Suspect]
     Active Substance: AMLODIPINE BESYLATE
     Indication: HYPERTENSION
     Dosage: 10 MG
     Route: 048
  3. RISPERDAL [Suspect]
     Active Substance: RISPERIDONE
     Dosage: 4 MG, QD
     Route: 065
  4. LORAZEPAM. [Concomitant]
     Active Substance: LORAZEPAM
     Indication: PRODUCT USED FOR UNKNOWN INDICATION
     Dosage: UNK
     Route: 065
  5. METGLUCO [Suspect]
     Active Substance: METFORMIN HYDROCHLORIDE
     Indication: DIABETES MELLITUS
     Dosage: 2000 MG
     Route: 048
  6. RISPERDAL [Suspect]
     Active Substance: RISPERIDONE
     Indication: PRODUCT USED FOR UNKNOWN INDICATION
     Dosage: UNK MG
     Route: 065
  7. RISPERDAL [Suspect]
     Active Substance: RISPERIDONE
     Dosage: 12 MG
     Route: 065
  8. RISPERDAL [Suspect]
     Active Substance: RISPERIDONE
     Dosage: 1 MG, PRN
     Route: 065
  9. LULLAN [Suspect]
     Active Substance: PEROSPIRONE HYDROCHLORIDE
     Dosage: UNK, QD
     Route: 048
  10. LULLAN [Suspect]
     Active Substance: PEROSPIRONE HYDROCHLORIDE
     Dosage: 1 MG, QD
     Route: 048
  11. RISPERDAL [Suspect]
     Active Substance: RISPERIDONE
     Dosage: 12CYCLES/DAY
     Route: 065
  12. RISPERDAL [Suspect]
     Active Substance: RISPERIDONE
     Dosage: 4 MG, TID
     Route: 065
  13. LITHIUM CARBONATE. [Concomitant]
     Active Substance: LITHIUM CARBONATE
     Indication: PRODUCT USED FOR UNKNOWN INDICATION
     Dosage: MORNING AND EVENING
     Route: 065
  14. BELSOMRA [Concomitant]
     Active Substance: SUVOREXANT
     Indication: PRODUCT USED FOR UNKNOWN INDICATION
     Dosage: UNK
     Route: 065
  15. DIOVAN [Suspect]
     Active Substance: VALSARTAN
     Indication: HYPERTENSION
     Dosage: 160 MG
     Route: 048
  16. AKINETON [Suspect]
     Active Substance: BIPERIDEN HYDROCHLORIDE
     Dosage: UNK
     Route: 048
     Dates: start: 20191017
  17. METGLUCO [Suspect]
     Active Substance: METFORMIN HYDROCHLORIDE
     Dosage: 1000 MG
     Route: 048
  18. LULLAN [Suspect]
     Active Substance: PEROSPIRONE HYDROCHLORIDE
     Dosage: 4 MG, BID(PRN)
     Route: 048
  19. MEILAX [Concomitant]
     Active Substance: ETHYL LOFLAZEPATE
     Indication: PRODUCT USED FOR UNKNOWN INDICATION
     Dosage: UNK
     Route: 065
  20. AKINETON [Suspect]
     Active Substance: BIPERIDEN HYDROCHLORIDE
     Dosage: 7 MG(MAX0.5MGX14CYCLES)
     Route: 048
  21. AKINETON [Suspect]
     Active Substance: BIPERIDEN HYDROCHLORIDE
     Dosage: 10 MG
     Route: 048
  22. AKINETON [Suspect]
     Active Substance: BIPERIDEN HYDROCHLORIDE
     Indication: PRODUCT USED FOR UNKNOWN INDICATION
     Dosage: UNK
     Route: 048
  23. METGLUCO [Suspect]
     Active Substance: METFORMIN HYDROCHLORIDE
     Dosage: 1500 MG
     Route: 048
     Dates: start: 20190602
  24. LANDSEN [Suspect]
     Active Substance: CLONAZEPAM
     Dosage: 1.5 MG
     Route: 065
  25. LULLAN [Suspect]
     Active Substance: PEROSPIRONE HYDROCHLORIDE
     Indication: ANXIETY DISORDER
     Dosage: 4 MG, TID
     Route: 048
  26. LULLAN [Suspect]
     Active Substance: PEROSPIRONE HYDROCHLORIDE
     Dosage: 4 MG, PRN
     Route: 048
  27. METGLUCO [Suspect]
     Active Substance: METFORMIN HYDROCHLORIDE
     Dosage: 1000 MG
     Route: 048
  28. LANDSEN [Suspect]
     Active Substance: CLONAZEPAM
     Dosage: 20 DF
     Route: 065
     Dates: start: 20191017
  29. RISPERDAL [Suspect]
     Active Substance: RISPERIDONE
     Dosage: 6 MG
     Route: 065
  30. LULLAN [Suspect]
     Active Substance: PEROSPIRONE HYDROCHLORIDE
     Dosage: 4 MG, PRN
     Route: 048
  31. LULLAN [Suspect]
     Active Substance: PEROSPIRONE HYDROCHLORIDE
     Dosage: UNK UNK, BID
     Route: 048
  32. RISPERIDONE. [Concomitant]
     Active Substance: RISPERIDONE
     Indication: PRODUCT USED FOR UNKNOWN INDICATION
     Dosage: 1 MG, PRN
     Route: 065
  33. EQUA TAB [Suspect]
     Active Substance: VILDAGLIPTIN
     Indication: TYPE 2 DIABETES MELLITUS
     Dosage: 100 MG
     Route: 048
     Dates: end: 20190602
  34. LANDSEN [Suspect]
     Active Substance: CLONAZEPAM
     Dosage: 0.5 MG
     Route: 065
  35. RIVOTRIL [Suspect]
     Active Substance: CLONAZEPAM
     Indication: PRODUCT USED FOR UNKNOWN INDICATION
     Dosage: UNK
     Route: 065
  36. RISPERDAL [Suspect]
     Active Substance: RISPERIDONE
     Dosage: 2 MG
     Route: 065
  37. BETANIS [Suspect]
     Active Substance: MIRABEGRON
     Indication: HYPERTONIC BLADDER
     Dosage: UNK
     Route: 065
  38. TRAZODONE [Concomitant]
     Active Substance: TRAZODONE HYDROCHLORIDE
     Indication: PRODUCT USED FOR UNKNOWN INDICATION
     Dosage: UNK
     Route: 065

REACTIONS (19)
  - Type 2 diabetes mellitus [Unknown]
  - Disease progression [Unknown]
  - Physical deconditioning [Unknown]
  - Dizziness postural [Recovered/Resolved]
  - Restlessness [Unknown]
  - Tension [Unknown]
  - Headache [Unknown]
  - Nausea [Unknown]
  - Irritability [Unknown]
  - Dizziness postural [Unknown]
  - Anxiety disorder [Unknown]
  - Listless [Not Recovered/Not Resolved]
  - Behaviour disorder [Unknown]
  - Dyslalia [Unknown]
  - Persistent depressive disorder [Unknown]
  - Judgement impaired [Unknown]
  - Fall [Unknown]
  - Stupor [Unknown]
  - Muscle twitching [Unknown]

NARRATIVE: CASE EVENT DATE: 20200220
